FAERS Safety Report 19954822 (Version 3)
Quarter: 2021Q4

REPORT INFORMATION
  Report Type: Spontaneous
  Country: GB (occurrence: GB)
  Receive Date: 20211013
  Receipt Date: 20211210
  Transmission Date: 20220303
  Serious: Yes (Hospitalization, Other)
  Sender: FDA-Public Use
  Company Number: GB-PFIZER INC-202101316984

PATIENT
  Age: 77 Year
  Sex: Female
  Weight: 73 kg

DRUGS (9)
  1. IBRANCE [Suspect]
     Active Substance: PALBOCICLIB
     Indication: Breast cancer metastatic
     Dosage: 125 MG, 1ST CYCLE 1X/DAY FOR 21 DAYS THEN 7 DAYS REST
     Route: 048
     Dates: start: 20210518
  2. IBRANCE [Suspect]
     Active Substance: PALBOCICLIB
     Dosage: STARTED 2ND CYCLE - TOOK 21 TABLETS
     Route: 048
     Dates: start: 20210617
  3. IBRANCE [Suspect]
     Active Substance: PALBOCICLIB
     Dosage: 3RD CYCLE TOOK 2 TABLETS
     Route: 048
     Dates: start: 20210814
  4. IBRANCE [Suspect]
     Active Substance: PALBOCICLIB
     Dosage: STARTED 4TH CYCLE - TOOK 1 TABLET
     Route: 048
     Dates: start: 20210916, end: 20210916
  5. LETROZOLE [Concomitant]
     Active Substance: LETROZOLE
     Dosage: 2.5 MG, DAILY
     Dates: start: 20210326
  6. PREDNISOLONE [Concomitant]
     Active Substance: PREDNISOLONE
     Dosage: 10 MG, DAILY DAILY INCREASED TO 10MG 26/03/21
     Dates: start: 20180116
  7. DENOSUMAB [Concomitant]
     Active Substance: DENOSUMAB
     Dosage: UNK, MONTHLY
     Dates: start: 20210518
  8. ADCAL [CALCIUM CARBONATE;COLECALCIFEROL] [Concomitant]
     Dosage: UNK
  9. LEVOTHYROXINE [Concomitant]
     Active Substance: LEVOTHYROXINE
     Dosage: 25 UG, DAILY
     Dates: start: 2019

REACTIONS (3)
  - Feeling abnormal [Recovered/Resolved]
  - Pyrexia [Recovered/Resolved]
  - Neutrophil count decreased [Unknown]

NARRATIVE: CASE EVENT DATE: 20210606
